FAERS Safety Report 7750491-3 (Version None)
Quarter: 2011Q3

REPORT INFORMATION
  Report Type: 
  Country: None (occurrence: None)
  Receive Date: 20110914
  Receipt Date: 20110909
  Transmission Date: 20111222
  Serious: Yes (Other)
  Sender: FDA-Public Use
  Company Number: JP-PFIZER INC-2011211378

PATIENT
  Sex: Male

DRUGS (1)
  1. ZITHROMAX [Suspect]
     Dosage: UNK
     Route: 048
     Dates: start: 20110907, end: 20110907

REACTIONS (6)
  - WHEEZING [None]
  - NAUSEA [None]
  - HAEMATOCHEZIA [None]
  - ABDOMINAL PAIN [None]
  - DIARRHOEA [None]
  - CONSTIPATION [None]
